FAERS Safety Report 26153101 (Version 3)
Quarter: 2025Q4

REPORT INFORMATION
  Report Type: Report from Study
  Country: CA (occurrence: CA)
  Receive Date: 20251214
  Receipt Date: 20251223
  Transmission Date: 20260118
  Serious: No
  Sender: BIOGEN
  Company Number: CA-BIOGEN-2020BI00858145

PATIENT
  Age: 45 Year
  Sex: Female

DRUGS (6)
  1. TYSABRI [Suspect]
     Active Substance: NATALIZUMAB
     Indication: Relapsing-remitting multiple sclerosis
     Dosage: INFUSED OVER 1 HOUR
     Dates: start: 20181227, end: 20201230
  2. TYSABRI [Suspect]
     Active Substance: NATALIZUMAB
  3. TYSABRI [Suspect]
     Active Substance: NATALIZUMAB
     Dates: start: 20240104
  4. TYSABRI [Suspect]
     Active Substance: NATALIZUMAB
     Dosage: ALSO REPORTED TO BE STARTED ON 04-JAN-2024
     Dates: start: 20231206
  5. TYSABRI [Suspect]
     Active Substance: NATALIZUMAB
     Dates: end: 20210218
  6. TYSABRI [Suspect]
     Active Substance: NATALIZUMAB
     Dates: start: 20240104

REACTIONS (14)
  - Nasopharyngitis [Recovering/Resolving]
  - Influenza [Recovered/Resolved]
  - Cough [Recovering/Resolving]
  - Prescribed underdose [Not Recovered/Not Resolved]
  - Ocular demodicosis [Recovered/Resolved]
  - Urticaria [Not Recovered/Not Resolved]
  - Fungal infection [Recovered/Resolved]
  - Skin infection [Recovered/Resolved]
  - Bacterial infection [Recovered/Resolved]
  - Tinea infection [Recovered/Resolved]
  - White coat hypertension [Recovered/Resolved]
  - Ear swelling [Not Recovered/Not Resolved]
  - Bacterial vaginosis [Recovered/Resolved]
  - Sinus congestion [Recovering/Resolving]

NARRATIVE: CASE EVENT DATE: 20240328
